FAERS Safety Report 8618424-5 (Version None)
Quarter: 2012Q3

REPORT INFORMATION
  Report Type: 
  Country: None (occurrence: None)
  Receive Date: 20120824
  Receipt Date: 20120820
  Transmission Date: 20120928
  Serious: No
  Sender: FDA-Public Use
  Company Number: US-BIOGENIDEC-2012BI032720

PATIENT
  Age: 44 Year
  Sex: Female

DRUGS (4)
  1. AVONEX [Suspect]
     Route: 030
     Dates: start: 20100718, end: 20110725
  2. AVONEX [Suspect]
     Indication: MULTIPLE SCLEROSIS
     Route: 030
     Dates: start: 20040701
  3. AVONEX [Suspect]
     Route: 030
     Dates: start: 20120729
  4. AVONEX [Suspect]
     Route: 030
     Dates: start: 20120810

REACTIONS (1)
  - CONFUSIONAL STATE [None]
